FAERS Safety Report 16381465 (Version 1)
Quarter: 2019Q2

REPORT INFORMATION
  Report Type: Spontaneous
  Country: GB (occurrence: GB)
  Receive Date: 20190603
  Receipt Date: 20190603
  Transmission Date: 20190711
  Serious: Yes (Hospitalization)
  Sender: FDA-Public Use
  Company Number: GB-ROCHE-2327581

PATIENT
  Age: 25 Year
  Sex: Female
  Weight: 54.7 kg

DRUGS (11)
  1. LANSOPRAZOLE. [Concomitant]
     Active Substance: LANSOPRAZOLE
  2. MUPIROCIN. [Concomitant]
     Active Substance: MUPIROCIN
  3. ALFACALCIDOL [Concomitant]
     Active Substance: ALFACALCIDOL
  4. RITUXIMAB. [Suspect]
     Active Substance: RITUXIMAB
     Indication: LUPUS NEPHRITIS
     Route: 042
     Dates: start: 20160531, end: 20160621
  5. MOXONIDINE [Concomitant]
     Active Substance: MOXONIDINE
  6. AMLODIPINE [Concomitant]
     Active Substance: AMLODIPINE BESYLATE
  7. PARACETAMOL [Concomitant]
     Active Substance: ACETAMINOPHEN
  8. DARBEPOETIN ALFA [Concomitant]
     Active Substance: DARBEPOETIN ALFA
  9. HYDROXYCHLOROQUINE [Concomitant]
     Active Substance: HYDROXYCHLOROQUINE
  10. OCTENISAN [ALLANTOIN;OCTENIDINE HYDROCHLORIDE] [Concomitant]
  11. PREDNISOLONE. [Concomitant]
     Active Substance: PREDNISOLONE

REACTIONS (7)
  - Peritonitis [Recovered/Resolved]
  - Device leakage [Unknown]
  - Chills [Unknown]
  - Hypertension [Not Recovered/Not Resolved]
  - Feeling cold [Unknown]
  - Suprapubic pain [Unknown]
  - Abdominal pain lower [Unknown]

NARRATIVE: CASE EVENT DATE: 20160803
